FAERS Safety Report 22129129 (Version 2)
Quarter: 2023Q2

REPORT INFORMATION
  Report Type: Report from Study
  Country: US (occurrence: US)
  Receive Date: 20230323
  Receipt Date: 20230501
  Transmission Date: 20230722
  Serious: Yes (Hospitalization, Other)
  Sender: FDA-Public Use
  Company Number: US-ABBVIE-4699661

PATIENT
  Age: 61 Year
  Sex: Female

DRUGS (3)
  1. RINVOQ [Suspect]
     Active Substance: UPADACITINIB
     Indication: Rheumatoid arthritis
     Dosage: STRENGTH: 15 MG, FIRST ADMIN DATE: 2022
     Route: 048
     Dates: end: 202108
  2. RINVOQ [Suspect]
     Active Substance: UPADACITINIB
     Indication: Rheumatoid arthritis
     Dosage: STRENGTH: 15 MG
     Route: 048
     Dates: start: 202301
  3. RINVOQ [Suspect]
     Active Substance: UPADACITINIB
     Indication: Rheumatoid arthritis
     Dosage: STRENGTH: 15 MG,
     Route: 048
     Dates: start: 20220109

REACTIONS (12)
  - Pancreatitis [Unknown]
  - Unevaluable event [Recovered/Resolved]
  - COVID-19 [Unknown]
  - Asthenia [Not Recovered/Not Resolved]
  - Fatigue [Unknown]
  - Pneumonia fungal [Unknown]
  - Intestinal obstruction [Recovered/Resolved with Sequelae]
  - Dehydration [Recovered/Resolved]
  - Pneumonia [Unknown]
  - Physiotherapy [Unknown]
  - Herpes zoster [Recovered/Resolved]
  - Nausea [Unknown]

NARRATIVE: CASE EVENT DATE: 20210801
